FAERS Safety Report 23542829 (Version 1)
Quarter: 2024Q1

REPORT INFORMATION
  Report Type: Spontaneous
  Country: JP (occurrence: JP)
  Receive Date: 20240220
  Receipt Date: 20240220
  Transmission Date: 20240410
  Serious: Yes (Other)
  Sender: FDA-Public Use
  Company Number: JP-BAYER-2024A024378

PATIENT
  Age: 83 Year
  Sex: Male
  Weight: 48 kg

DRUGS (4)
  1. XARELTO [Suspect]
     Active Substance: RIVAROXABAN
     Indication: Atrial fibrillation
     Dosage: 10MG
     Route: 048
     Dates: start: 20221112
  2. XARELTO [Suspect]
     Active Substance: RIVAROXABAN
     Indication: Cerebrovascular accident prophylaxis
     Route: 048
  3. LEVOCETIRIZINE DIHYDROCHLORIDE [Concomitant]
     Active Substance: LEVOCETIRIZINE DIHYDROCHLORIDE
  4. HERBALS [Concomitant]
     Active Substance: HERBALS

REACTIONS (6)
  - Retinal detachment [Unknown]
  - Visual impairment [Unknown]
  - Dysuria [Unknown]
  - Weight decreased [Unknown]
  - Urinary occult blood positive [Unknown]
  - Blood pressure decreased [Unknown]

NARRATIVE: CASE EVENT DATE: 20240118
